FAERS Safety Report 23443034 (Version 5)
Quarter: 2025Q2

REPORT INFORMATION
  Report Type: Spontaneous
  Country: US (occurrence: US)
  Receive Date: 20240125
  Receipt Date: 20250425
  Transmission Date: 20250717
  Serious: No
  Sender: PFIZER
  Company Number: US-PFIZER INC-PV202400010558

PATIENT
  Age: 73 Year
  Sex: Female

DRUGS (2)
  1. IBRANCE [Suspect]
     Active Substance: PALBOCICLIB
     Route: 048
  2. EXEMESTANE [Concomitant]
     Active Substance: EXEMESTANE

REACTIONS (4)
  - Nausea [Recovered/Resolved]
  - Radiation injury [Unknown]
  - Fatigue [Unknown]
  - Off label use [Unknown]
